FAERS Safety Report 7073361-5 (Version None)
Quarter: 2010Q4

REPORT INFORMATION
  Report Type: 
  Country: None (occurrence: None)
  Receive Date: 20101029
  Receipt Date: 20101028
  Transmission Date: 20110411
  Serious: Yes (Death, Hospitalization)
  Sender: FDA-Public Use
  Company Number: JP-SANOFI-AVENTIS-2010SA063716

PATIENT
  Age: 51 Year
  Sex: Male

DRUGS (7)
  1. OXALIPLATIN [Suspect]
     Indication: LARGE INTESTINE CARCINOMA
     Route: 041
     Dates: start: 20080718, end: 20080718
  2. OXALIPLATIN [Suspect]
     Route: 041
     Dates: start: 20090508, end: 20090508
  3. AVASTIN [Suspect]
     Indication: LARGE INTESTINE CARCINOMA
     Route: 041
     Dates: start: 20080718, end: 20080718
  4. AVASTIN [Suspect]
     Route: 041
     Dates: start: 20090508, end: 20090508
  5. CALCIUM LEVOFOLINATE [Suspect]
     Indication: LARGE INTESTINE CARCINOMA
     Route: 042
  6. FLUOROURACIL [Suspect]
     Indication: LARGE INTESTINE CARCINOMA
     Route: 042
     Dates: start: 20080718, end: 20080718
  7. FLUOROURACIL [Suspect]
     Route: 042
     Dates: start: 20091113, end: 20091113

REACTIONS (3)
  - CEREBRAL INFARCTION [None]
  - DISEASE PROGRESSION [None]
  - POLYMYOSITIS [None]
